FAERS Safety Report 7652730-6 (Version None)
Quarter: 2011Q3

REPORT INFORMATION
  Report Type: 
  Country: None (occurrence: None)
  Receive Date: 20110802
  Receipt Date: 20110802
  Transmission Date: 20111222
  Serious: Yes (Hospitalization)
  Sender: FDA-Public Use
  Company Number: None

PATIENT
  Sex: Male
  Weight: 92.3 kg

DRUGS (4)
  1. LEUCOVORIN CALCIUM [Suspect]
     Dosage: 1640 MG
  2. ELOXATIN [Suspect]
     Dosage: 310 MG
  3. FLUOROURACIL [Suspect]
     Dosage: 10140 MG
  4. BEVACIZUMAB (RHUMAB VEGF) [Suspect]
     Dosage: 920 MG

REACTIONS (3)
  - HAEMOGLOBIN DECREASED [None]
  - NEUTROPHIL COUNT DECREASED [None]
  - PYREXIA [None]
